FAERS Safety Report 5292415-7 (Version None)
Quarter: 2007Q2

REPORT INFORMATION
  Report Type: 
  Country: None (occurrence: None)
  Receive Date: 20070410
  Receipt Date: 20070329
  Transmission Date: 20071010
  Serious: Yes (Hospitalization, Other)
  Sender: FDA-Public Use
  Company Number: US-PFIZER INC-2005131126

PATIENT
  Sex: Female

DRUGS (9)
  1. NEURONTIN [Suspect]
     Indication: RESTLESS LEGS SYNDROME
  2. NEURONTIN [Suspect]
     Indication: ATTENTION DEFICIT/HYPERACTIVITY DISORDER
  3. NEURONTIN [Suspect]
     Indication: LIMB DISCOMFORT
  4. NEURONTIN [Suspect]
     Indication: MIGRAINE
  5. NEURONTIN [Suspect]
     Indication: DRUG WITHDRAWAL CONVULSIONS
  6. XANAX [Suspect]
  7. OXYCONTIN [Suspect]
  8. SOMA [Suspect]
  9. AMBIEN [Suspect]

REACTIONS (3)
  - DRUG INEFFECTIVE [None]
  - MULTIPLE DRUG OVERDOSE [None]
  - SUICIDE ATTEMPT [None]
